FAERS Safety Report 24041957 (Version 2)
Quarter: 2024Q3

REPORT INFORMATION
  Report Type: Report from Study
  Country: ES (occurrence: ES)
  Receive Date: 20240702
  Receipt Date: 20240708
  Transmission Date: 20241017
  Serious: Yes (Hospitalization)
  Sender: MYLAN
  Company Number: ES-ABBVIE-5660765

PATIENT
  Age: 80 Year
  Sex: Male

DRUGS (10)
  1. OLANZAPINE [Suspect]
     Active Substance: OLANZAPINE
     Indication: Hallucination
     Dosage: UNK
     Route: 048
     Dates: start: 20240529
  2. CARBIDOPA\LEVODOPA [Suspect]
     Active Substance: CARBIDOPA\LEVODOPA
     Indication: Parkinson^s disease
     Dosage: UNK, DOSE ADJUSTMENT 240 MG/ML + 12 MG/ML SOLUTION FOR PERFUSION
     Route: 058
     Dates: start: 202406
  3. CARBIDOPA\LEVODOPA [Suspect]
     Active Substance: CARBIDOPA\LEVODOPA
     Dosage: HIGH DOSE AT NIGHT; 240 MG/ML + 12 MG/ML SOLUTION FOR PERFUSION
     Route: 058
     Dates: start: 20240308
  4. CARBIDOPA\LEVODOPA [Suspect]
     Active Substance: CARBIDOPA\LEVODOPA
     Dosage: 240 MG/ML + 12 MG/ ML SOLUTION FOR PERFUSION
     Route: 058
     Dates: start: 20240219, end: 20240227
  5. CARBIDOPA\LEVODOPA [Suspect]
     Active Substance: CARBIDOPA\LEVODOPA
     Dosage: DOSE IS UPDATED, 240 MG/ML + 12 MG/ML SOLUTION FOR PERFUSION
     Route: 058
     Dates: start: 2024, end: 202406
  6. CARBIDOPA\LEVODOPA [Suspect]
     Active Substance: CARBIDOPA\LEVODOPA
     Dosage: LOW DOSE AT NIGHT AND THE HIGH DOSE DURING THE DAY; 240 MG/ML + 12 MG/ML SOLUTION FOR PERFUSION
     Route: 058
     Dates: start: 20240304, end: 20240308
  7. CARBIDOPA\LEVODOPA [Suspect]
     Active Substance: CARBIDOPA\LEVODOPA
     Dosage: HIGH RESCUE DOSE, 240 MG/ML + 12 MG/ML SOLUTION FOR PERFUSION
     Route: 058
     Dates: start: 20240227, end: 20240304
  8. AZILECT [Concomitant]
     Active Substance: RASAGILINE MESYLATE
     Indication: On and off phenomenon
     Dosage: 1 MILLIGRAM, QD
     Route: 048
     Dates: start: 20240318
  9. PRAMIPEXOLE [Concomitant]
     Active Substance: PRAMIPEXOLE\PRAMIPEXOLE DIHYDROCHLORIDE
     Indication: Product used for unknown indication
     Dosage: 0.26 MILLIGRAM, QD
     Route: 048
  10. LORAZEPAM [Concomitant]
     Active Substance: LORAZEPAM
     Indication: Product used for unknown indication
     Dosage: UNK, 0.33 DAY
     Route: 065

REACTIONS (13)
  - Hallucination [Not Recovered/Not Resolved]
  - Haemorrhage [Unknown]
  - Nodule [Unknown]
  - Infusion site haematoma [Recovering/Resolving]
  - Puncture site erythema [Unknown]
  - Eye operation [Recovered/Resolved]
  - Puncture site haemorrhage [Unknown]
  - On and off phenomenon [Not Recovered/Not Resolved]
  - Mobility decreased [Unknown]
  - Anxiety [Not Recovered/Not Resolved]
  - Depression [Not Recovered/Not Resolved]
  - Product knowledge deficit [Unknown]
  - Therapeutic product effect delayed [Not Recovered/Not Resolved]
